FAERS Safety Report 22960873 (Version 3)
Quarter: 2023Q4

REPORT INFORMATION
  Report Type: Report from Study
  Country: US (occurrence: US)
  Receive Date: 20230920
  Receipt Date: 20231121
  Transmission Date: 20240110
  Serious: Yes (Other)
  Sender: FDA-Public Use
  Company Number: US-UCBSA-2023035365

PATIENT
  Sex: Female
  Weight: 130.61 kg

DRUGS (1)
  1. CERTOLIZUMAB PEGOL [Suspect]
     Active Substance: CERTOLIZUMAB PEGOL
     Indication: Psoriatic arthropathy
     Dosage: 200 MILLIGRAM, EV 2 WEEKS(QOW)
     Dates: start: 20230616, end: 20230823

REACTIONS (10)
  - Cushing^s syndrome [Not Recovered/Not Resolved]
  - Urinary incontinence [Recovered/Resolved]
  - Urinary incontinence surgery [Recovered/Resolved]
  - Injection site bruising [Recovering/Resolving]
  - Injection site rash [Recovered/Resolved]
  - Injection site urticaria [Recovered/Resolved]
  - Injection site pruritus [Recovered/Resolved]
  - Fatigue [Recovered/Resolved]
  - Insomnia [Recovered/Resolved]
  - Intentional dose omission [Unknown]

NARRATIVE: CASE EVENT DATE: 20230101
